FAERS Safety Report 14947913 (Version 1)
Quarter: 2018Q2

REPORT INFORMATION
  Report Type: Spontaneous
  Country: US (occurrence: US)
  Receive Date: 20180508
  Receipt Date: 20180508
  Transmission Date: 20180711
  Serious: No
  Sender: FDA-Public Use
  Company Number: None

PATIENT
  Age: 62 Year
  Sex: Female

DRUGS (12)
  1. ZOLPIDEM [Concomitant]
     Active Substance: ZOLPIDEM\ZOLPIDEM TARTRATE
  2. NINLARO [Suspect]
     Active Substance: IXAZOMIB CITRATE
     Indication: PLASMA CELL MYELOMA
     Dosage: ?          OTHER FREQUENCY:3 TIMES A MONTH;?
     Route: 048
     Dates: start: 20180215, end: 20180508
  3. OMEPRAZOLE. [Concomitant]
     Active Substance: OMEPRAZOLE
  4. OXYCONTIN [Concomitant]
     Active Substance: OXYCODONE HYDROCHLORIDE
  5. LIPOIC ACID POWDER [Concomitant]
  6. COMBIVENT [Concomitant]
     Active Substance: ALBUTEROL SULFATE\IPRATROPIUM BROMIDE
  7. GABAPENTIN. [Concomitant]
     Active Substance: GABAPENTIN
  8. LORAZEPAM. [Concomitant]
     Active Substance: LORAZEPAM
  9. OXYCODONE AND ACETAMINOPHEN [Concomitant]
     Active Substance: ACETAMINOPHEN\OXYCODONE HYDROCHLORIDE
  10. NINLARO [Suspect]
     Active Substance: IXAZOMIB CITRATE
     Indication: DISEASE RECURRENCE
     Dosage: ?          OTHER FREQUENCY:3 TIMES A MONTH;?
     Route: 048
     Dates: start: 20180215, end: 20180508
  11. PRADAXA [Concomitant]
     Active Substance: DABIGATRAN ETEXILATE MESYLATE
  12. BUPROPION. [Concomitant]
     Active Substance: BUPROPION

REACTIONS (1)
  - Rash [None]

NARRATIVE: CASE EVENT DATE: 20180507
